FAERS Safety Report 12958838 (Version 1)
Quarter: 2016Q4

REPORT INFORMATION
  Report Type: Spontaneous
  Country: US (occurrence: US)
  Receive Date: 20161117
  Receipt Date: 20161117
  Transmission Date: 20170207
  Serious: No
  Sender: FDA-Public Use
  Company Number: None

PATIENT
  Age: 61 Year
  Sex: Female

DRUGS (23)
  1. ALBUTEROL. [Concomitant]
     Active Substance: ALBUTEROL
  2. FOLIC ACID. [Suspect]
     Active Substance: FOLIC ACID
  3. GABAPENTIN. [Concomitant]
     Active Substance: GABAPENTIN
  4. PROMETHAZINE [Concomitant]
     Active Substance: PROMETHAZINE\PROMETHAZINE HYDROCHLORIDE
  5. VITAMIN B1 [Concomitant]
     Active Substance: THIAMINE HYDROCHLORIDE
  6. WARFARIN [Suspect]
     Active Substance: WARFARIN
     Indication: PULMONARY EMBOLISM
     Route: 048
  7. AMITRIPTYLINE [Concomitant]
     Active Substance: AMITRIPTYLINE
  8. BUDESONIDE/FORMOTEROL [Concomitant]
     Active Substance: BUDESONIDE\FORMOTEROL
  9. TRAMADOL. [Concomitant]
     Active Substance: TRAMADOL
  10. INSULIN LISPRO [Concomitant]
     Active Substance: INSULIN LISPRO
  11. POLYETHYLENE GLYCOL 3350. [Concomitant]
     Active Substance: POLYETHYLENE GLYCOL 3350
  12. SEVELAMER [Concomitant]
     Active Substance: SEVELAMER
  13. MIDODRINE [Concomitant]
     Active Substance: MIDODRINE
  14. ONDANSETRON [Concomitant]
     Active Substance: ONDANSETRON
  15. ASPIRIN. [Suspect]
     Active Substance: ASPIRIN
     Route: 048
  16. FLUTICASONE [Concomitant]
     Active Substance: FLUTICASONE\FLUTICASONE PROPIONATE
  17. RANOLAZINE [Concomitant]
     Active Substance: RANOLAZINE
  18. ATORVASTATIN [Concomitant]
     Active Substance: ATORVASTATIN
  19. INSULIN REGULAR [Concomitant]
     Active Substance: INSULIN NOS
  20. VITAMIN C [Concomitant]
     Active Substance: ASCORBIC ACID
  21. ESOMEPRAZOLE [Concomitant]
     Active Substance: ESOMEPRAZOLE
  22. MONTELUKAST [Concomitant]
     Active Substance: MONTELUKAST SODIUM
  23. NITROGLYCERIN. [Concomitant]
     Active Substance: NITROGLYCERIN

REACTIONS (4)
  - Dyspnoea [None]
  - International normalised ratio increased [None]
  - Haemoglobin decreased [None]
  - Haemorrhage [None]

NARRATIVE: CASE EVENT DATE: 20161010
